FAERS Safety Report 8212367-7 (Version None)
Quarter: 2012Q1

REPORT INFORMATION
  Report Type: 
  Country: None (occurrence: None)
  Receive Date: 20120315
  Receipt Date: 20120307
  Transmission Date: 20120608
  Serious: Yes (Hospitalization)
  Sender: FDA-Public Use
  Company Number: GR-JNJFOC-20100101295

PATIENT
  Sex: Male
  Weight: 79 kg

DRUGS (13)
  1. ABIRATERONE ACETATE [Suspect]
     Route: 048
  2. CARVEDILOL [Concomitant]
     Indication: HYPERTENSION
     Route: 048
     Dates: start: 20040101
  3. ISOSORBIDE MONONITRATE [Concomitant]
     Indication: CORONARY ARTERY STENOSIS
     Route: 048
     Dates: start: 20040101
  4. CLOPIDOGREL [Concomitant]
     Indication: MYOCARDIAL INFARCTION
     Route: 048
     Dates: start: 20040101
  5. ZOLADEX [Concomitant]
     Indication: PROSTATE CANCER
     Route: 058
     Dates: start: 20060201
  6. PREDNISOLONE [Suspect]
     Indication: PROSTATE CANCER METASTATIC
     Route: 048
     Dates: start: 20091112
  7. AMLODIPINE BESYLATE [Concomitant]
     Indication: CORONARY ARTERY STENOSIS
     Route: 048
     Dates: start: 20040101
  8. IRBESARTAN [Concomitant]
     Indication: HYPERTENSION
     Route: 048
     Dates: start: 20040101, end: 20091130
  9. PRAVASTATIN [Concomitant]
     Indication: HYPERCHOLESTEROLAEMIA
     Route: 048
     Dates: start: 20040101
  10. ISOSORBIDE MONONITRATE [Concomitant]
     Indication: MYOCARDIAL INFARCTION
     Route: 048
     Dates: start: 20040101
  11. AMLODIPINE BESYLATE [Concomitant]
     Indication: HYPERTENSION
     Route: 048
     Dates: start: 20040101
  12. ABIRATERONE ACETATE [Suspect]
     Indication: PROSTATE CANCER METASTATIC
     Route: 048
     Dates: start: 20091112, end: 20101209
  13. CLOPIDOGREL [Concomitant]
     Indication: CORONARY ARTERY STENOSIS
     Route: 048
     Dates: start: 20040101

REACTIONS (1)
  - HYPONATRAEMIA [None]
